FAERS Safety Report 4603015-3 (Version None)
Quarter: 2005Q1

REPORT INFORMATION
  Report Type: 
  Country: None (occurrence: None)
  Receive Date: 20050307
  Receipt Date: 20050218
  Transmission Date: 20050727
  Serious: Yes (Other)
  Sender: FDA-Public Use
  Company Number: 2005028002

PATIENT
  Age: 76 Year
  Sex: Male

DRUGS (2)
  1. SOLU-MEDROL [Suspect]
     Indication: POSTOPERATIVE CARE
     Dosage: 40 MG
  2. PREDNISONE [Concomitant]

REACTIONS (5)
  - CHOROIDAL DETACHMENT [None]
  - GLAUCOMA [None]
  - RETINAL DETACHMENT [None]
  - RETINAL PIGMENT EPITHELIOPATHY [None]
  - VISUAL ACUITY REDUCED [None]
